FAERS Safety Report 8133214-8 (Version None)
Quarter: 2012Q1

REPORT INFORMATION
  Report Type: 
  Country: None (occurrence: None)
  Receive Date: 20120213
  Receipt Date: 20120208
  Transmission Date: 20120608
  Serious: Yes (Other)
  Sender: FDA-Public Use
  Company Number: PHEH2011US06680

PATIENT
  Sex: Female

DRUGS (13)
  1. VALTURNA [Suspect]
     Dosage: 1 DF (300/325MG), QD
  2. BENZEPRIL [Concomitant]
  3. VALTURNA [Suspect]
     Indication: BLOOD PRESSURE
     Dosage: 1 DF (300/325MG), QD
  4. VALTURNA [Suspect]
     Dosage: 1 DF (300/325MG), QD
  5. ACETYLSALICYLIC ACID SRT [Concomitant]
     Dosage: 81 MG, BID
  6. CRESTOR [Concomitant]
     Dosage: 10 MG, QD
  7. PLAVIX [Concomitant]
     Dosage: 75 MG, QW3
  8. HYDROCODONE [Concomitant]
  9. TRANXENE [Suspect]
     Dosage: 7.5 MG, BID
  10. BYSTOLIC [Concomitant]
     Dosage: 10 MG, QD
  11. AMLODIPINE [Concomitant]
     Dosage: 5 MG, QD
  12. BENAZEPRIL HYDROCHLORIDE [Concomitant]
     Dosage: 20 MG, QD
  13. TRANZINE [Concomitant]
     Dosage: 7.5 MG, BID

REACTIONS (6)
  - ELECTROCARDIOGRAM ABNORMAL [None]
  - BLOOD PRESSURE INCREASED [None]
  - TYPE 2 DIABETES MELLITUS [None]
  - MICTURITION DISORDER [None]
  - HEART RATE INCREASED [None]
  - OVERDOSE [None]
